FAERS Safety Report 9431113 (Version 1)
Quarter: 2013Q3

REPORT INFORMATION
  Report Type: Spontaneous
  Country: US (occurrence: US)
  Receive Date: 20130730
  Receipt Date: 20130730
  Transmission Date: 20140515
  Serious: No
  Sender: FDA-Public Use
  Company Number: US-ABBOTT-13P-163-1108324-00

PATIENT
  Age: 72 Year
  Sex: Male
  Weight: 80.81 kg

DRUGS (2)
  1. NIASPAN (COATED) [Suspect]
     Indication: LIPOPROTEIN (A) DECREASED
     Route: 048
     Dates: start: 2012, end: 201306
  2. NIASPAN (COATED) [Suspect]
     Dates: start: 201306

REACTIONS (4)
  - Rash pruritic [Recovered/Resolved]
  - Feeling hot [Recovered/Resolved with Sequelae]
  - Paraesthesia [Recovered/Resolved]
  - Erythema [Recovered/Resolved]
